FAERS Safety Report 7207358-9 (Version None)
Quarter: 2010Q4

REPORT INFORMATION
  Report Type: 
  Country: None (occurrence: None)
  Receive Date: 20101217
  Receipt Date: 20101208
  Transmission Date: 20110411
  Serious: Yes (Congenital Anomaly)
  Sender: FDA-Public Use
  Company Number: 2010JP007173

PATIENT
  Age: 80 Year
  Sex: Female

DRUGS (10)
  1. VESICARE [Suspect]
     Dosage: 5 MG, ORAL
     Route: 048
     Dates: start: 20101115
  2. CRESTOR [Concomitant]
  3. NIFEDIPINE [Concomitant]
  4. ASPIRIN [Concomitant]
  5. WARKMIN (ALFACALCIDOL) [Concomitant]
  6. CANDESARTAN CILEXETIL [Concomitant]
  7. METHYCOBAL (MECOBALAMIN) [Concomitant]
  8. HANGEKOUBOKUTOU (HERBAL EXTRACT NOS) [Concomitant]
  9. SERMION (NICERGOLINE) [Concomitant]
  10. FOLIC ACID [Concomitant]

REACTIONS (1)
  - CHROMATURIA [None]
